FAERS Safety Report 8029426-4 (Version None)
Quarter: 2012Q1

REPORT INFORMATION
  Report Type: 
  Country: None (occurrence: None)
  Receive Date: 20120106
  Receipt Date: 20111129
  Transmission Date: 20120608
  Serious: Yes (Other)
  Sender: FDA-Public Use
  Company Number: US-AMGEN LTD.-KDL435394

PATIENT
  Age: 21 Year
  Sex: Male
  Weight: 60 kg

DRUGS (2)
  1. PENICILLIN [Concomitant]
     Dosage: UNK UNK, UNK
  2. NPLATE [Suspect]
     Indication: IDIOPATHIC THROMBOCYTOPENIC PURPURA
     Dosage: 10 MUG/KG, UNK
     Dates: start: 20100525, end: 20110428

REACTIONS (3)
  - THERAPEUTIC RESPONSE DECREASED [None]
  - WEIGHT INCREASED [None]
  - TOOTH ABSCESS [None]
